FAERS Safety Report 12085379 (Version 2)
Quarter: 2016Q2

REPORT INFORMATION
  Report Type: Spontaneous
  Country: FR (occurrence: FR)
  Receive Date: 20160217
  Receipt Date: 20160401
  Transmission Date: 20160815
  Serious: Yes (Life-Threatening, Hospitalization)
  Sender: FDA-Public Use
  Company Number: FR-009507513-1602FRA005877

PATIENT
  Age: 74 Year
  Sex: Male
  Weight: 88 kg

DRUGS (9)
  1. LOXAPAC (LOXAPINE SUCCINATE) [Suspect]
     Active Substance: LOXAPINE SUCCINATE
     Dosage: 50 MG IN 24 HOURS
     Route: 048
     Dates: end: 20160122
  2. RENITEC [Suspect]
     Active Substance: ENALAPRIL MALEATE
     Route: 048
  3. PANTOPRAZOLE [Concomitant]
     Active Substance: PANTOPRAZOLE SODIUM
  4. PREVISCAN [Concomitant]
     Active Substance: FLUINDIONE
  5. PRITOR PLUS [Suspect]
     Active Substance: TELMISARTAN
     Dosage: UNK
  6. ZYLORIC [Concomitant]
     Active Substance: ALLOPURINOL
  7. ZOCOR [Suspect]
     Active Substance: SIMVASTATIN
     Dosage: 20 MG IN 24 HOURS
     Route: 048
     Dates: start: 201511, end: 20160122
  8. ARIMIDEX [Concomitant]
     Active Substance: ANASTROZOLE
  9. DIAMICRON [Concomitant]
     Active Substance: GLICLAZIDE

REACTIONS (5)
  - Back pain [Recovered/Resolved]
  - Rhabdomyolysis [Recovered/Resolved]
  - Muscle spasms [Recovered/Resolved]
  - Hypotension [Recovered/Resolved]
  - Acute kidney injury [Recovered/Resolved]

NARRATIVE: CASE EVENT DATE: 20160122
